FAERS Safety Report 6422832-0 (Version None)
Quarter: 2009Q4

REPORT INFORMATION
  Report Type: 
  Country: None (occurrence: None)
  Receive Date: 20091102
  Receipt Date: 20091028
  Transmission Date: 20100525
  Serious: Yes (Hospitalization, Other)
  Sender: FDA-Public Use
  Company Number: DE-BAYER-200915704GPV

PATIENT
  Age: 87 Year
  Sex: Female

DRUGS (6)
  1. CIPROFLOXACIN [Suspect]
     Indication: URINARY TRACT INFECTION
     Dosage: UNIT DOSE: 250 MG
     Route: 048
     Dates: start: 20090115, end: 20090122
  2. CLONT [Suspect]
     Indication: CLOSTRIDIUM DIFFICILE COLITIS
     Dosage: UNIT DOSE: 500 MG
     Route: 048
     Dates: start: 20090120, end: 20090201
  3. ACTRAPID HUMAN [Concomitant]
     Indication: TYPE 2 DIABETES MELLITUS
     Route: 058
  4. BISOHEXAL [Concomitant]
     Indication: TACHYARRHYTHMIA
     Dosage: UNIT DOSE: 5 MG
     Route: 048
  5. DURAGESIC-100 [Concomitant]
     Indication: PAIN
     Route: 062
  6. NOVODIGAL [Concomitant]
     Indication: TACHYARRHYTHMIA
     Dosage: UNIT DOSE: 0.2 MG
     Route: 048

REACTIONS (5)
  - CLOSTRIDIUM DIFFICILE COLITIS [None]
  - DIARRHOEA [None]
  - GASTRITIS HAEMORRHAGIC [None]
  - GENERAL PHYSICAL HEALTH DETERIORATION [None]
  - HAEMATEMESIS [None]
